FAERS Safety Report 7373338-6 (Version None)
Quarter: 2011Q1

REPORT INFORMATION
  Report Type: 
  Country: None (occurrence: None)
  Receive Date: 20110324
  Receipt Date: 20110316
  Transmission Date: 20110831
  Serious: Yes (Hospitalization, Other)
  Sender: FDA-Public Use
  Company Number: US-BAXTER-2010BH003394

PATIENT
  Age: 41 Year
  Sex: Female
  Weight: 71 kg

DRUGS (17)
  1. HEPARIN SODIUM INJECTION [Suspect]
     Indication: PRODUCT USED FOR UNKNOWN INDICATION
     Route: 058
     Dates: start: 20071019, end: 20071101
  2. AMLODIPINE BESYLATE [Concomitant]
     Indication: PRODUCT USED FOR UNKNOWN INDICATION
     Route: 065
  3. LORTAB [Concomitant]
     Indication: PRODUCT USED FOR UNKNOWN INDICATION
     Route: 065
  4. CLONIDINE [Concomitant]
     Indication: PRODUCT USED FOR UNKNOWN INDICATION
     Route: 065
  5. PROCARDIA [Concomitant]
     Indication: PRODUCT USED FOR UNKNOWN INDICATION
     Route: 065
  6. FLAGYL [Concomitant]
     Indication: PRODUCT USED FOR UNKNOWN INDICATION
     Route: 042
  7. ALBUTEROL [Concomitant]
     Route: 055
  8. LEVAQUIN [Concomitant]
     Route: 065
  9. HEPARIN SODIUM INJECTION [Suspect]
     Route: 042
     Dates: start: 20071019, end: 20071019
  10. DIOVAN HCT [Concomitant]
     Indication: PRODUCT USED FOR UNKNOWN INDICATION
     Route: 065
  11. PEPCID [Concomitant]
     Indication: PRODUCT USED FOR UNKNOWN INDICATION
     Route: 042
  12. LEVAQUIN [Suspect]
     Indication: PRODUCT USED FOR UNKNOWN INDICATION
     Route: 065
     Dates: start: 20071001, end: 20071001
  13. ALBUTEROL [Concomitant]
     Route: 055
  14. KETOROLAC TROMETHAMINE [Concomitant]
     Indication: PRODUCT USED FOR UNKNOWN INDICATION
     Route: 065
  15. ALBUTEROL [Concomitant]
     Indication: PRODUCT USED FOR UNKNOWN INDICATION
     Route: 055
  16. ZOFRAN [Concomitant]
     Indication: PRODUCT USED FOR UNKNOWN INDICATION
     Route: 065
  17. VASOTEC [Concomitant]
     Indication: PRODUCT USED FOR UNKNOWN INDICATION
     Route: 042

REACTIONS (15)
  - THROMBOPHLEBITIS [None]
  - CHROMATURIA [None]
  - CELLULITIS [None]
  - LUNG CONSOLIDATION [None]
  - ABDOMINAL PAIN [None]
  - PRESYNCOPE [None]
  - VENTRICULAR TACHYCARDIA [None]
  - PLEURAL EFFUSION [None]
  - VOMITING [None]
  - RASH MACULO-PAPULAR [None]
  - BACK PAIN [None]
  - STAPHYLOCOCCAL SEPSIS [None]
  - GASTROINTESTINAL ANASTOMOTIC LEAK [None]
  - URTICARIA [None]
  - NAUSEA [None]
